FAERS Safety Report 24545109 (Version 1)
Quarter: 2024Q4

REPORT INFORMATION
  Report Type: Spontaneous
  Country: US (occurrence: None)
  Receive Date: 20241023
  Receipt Date: 20241023
  Transmission Date: 20250114
  Serious: Yes (Life-Threatening, Hospitalization, Disabling)
  Sender: Public
  Company Number: None

PATIENT
  Age: 44 Year
  Sex: Female

DRUGS (8)
  1. LURASIDONE [Suspect]
     Active Substance: LURASIDONE
     Indication: Bipolar disorder
  2. OLANZAPINE [Concomitant]
     Active Substance: OLANZAPINE
  3. LEVOTHYROXINE [Concomitant]
     Active Substance: LEVOTHYROXINE
  4. LAMICTAL [Concomitant]
     Active Substance: LAMOTRIGINE
  5. LEXAPRO [Concomitant]
     Active Substance: ESCITALOPRAM OXALATE
  6. HYDROXYZINE [Concomitant]
     Active Substance: HYDROXYZINE HYDROCHLORIDE
  7. IMITREX [Concomitant]
     Active Substance: SUMATRIPTAN SUCCINATE
  8. PROPRANOLOL [Concomitant]
     Active Substance: PROPRANOLOL HYDROCHLORIDE

REACTIONS (3)
  - White blood cell count decreased [None]
  - Sepsis [None]
  - Coma [None]

NARRATIVE: CASE EVENT DATE: 20240326
